FAERS Safety Report 4478525-2 (Version None)
Quarter: 2004Q4

REPORT INFORMATION
  Report Type: 
  Country: None (occurrence: None)
  Receive Date: 20041013
  Receipt Date: 20040929
  Transmission Date: 20050328
  Serious: Yes (Death, Hospitalization)
  Sender: FDA-Public Use
  Company Number: 237728

PATIENT
  Age: 79 Year
  Sex: Female
  Weight: 65 kg

DRUGS (21)
  1. ACTRAPID(INSULIN HUMAN) SOLUTION FOR INJECTION [Suspect]
     Indication: DIABETES MELLITUS
     Dosage: 70 IU, QD, SUBCUTANEOUS
     Route: 058
     Dates: start: 20040617, end: 20040618
  2. HEMOHES (HETASTARCH) [Concomitant]
  3. DOBUTAMIN   HEXAL    (DOBUTAMINE HYDROCHLORIDE) [Concomitant]
  4. NOREPINEPHRINE (NOREPINEPHRINE) [Concomitant]
  5. FUROSEMID   DAK   (FUROSEMIDE) [Concomitant]
  6. INTRAFUSIN (AMINO ACIDS NOS) [Concomitant]
  7. INZOLEN (MAGNESIUM ASPARTATE, ASPARTATE ZINC, POTASSIUM HYDROGEN ASPAR [Concomitant]
  8. INTRALIPID (SOYA OIL, LECITHIN, GLYCEROL) [Concomitant]
  9. RANITIDIN  ALIUD PHARMA  (RANITIDINE HYDROCHLORIDE) [Concomitant]
  10. PIRITRAMIDE (PIRITRAMIDE) [Concomitant]
  11. NEOSTIGMINE (NEOSTIGMINE) [Concomitant]
  12. PANTHENOL (PANTHENOL) [Concomitant]
  13. CERNEVIT-12 [Concomitant]
  14. MCP   ALIUD PHARMA   (METOCLOPRAMIDE HYDROCHLORIDE) [Concomitant]
  15. NADROPARIN (NADROPARIN) [Concomitant]
  16. LORAZEPAM [Concomitant]
  17. EMSER SOLE (ELECTROLYTES NOS) [Concomitant]
  18. TAZOBAC (PIPERACILLIN SODIUM, TAZOBACTAM SODIUM) [Concomitant]
  19. NACL [Concomitant]
  20. ACETYLCYSTEINE [Concomitant]
  21. SACCHAROMYCES BOULARDII (SACCHAROMYCES BOULARDII) [Concomitant]

REACTIONS (4)
  - ACUTE ABDOMEN [None]
  - HYPOGLYCAEMIC COMA [None]
  - ILEUS [None]
  - SEPTIC SHOCK [None]
